FAERS Safety Report 25216656 (Version 1)
Quarter: 2025Q2

REPORT INFORMATION
  Report Type: Spontaneous
  Country: BR (occurrence: BR)
  Receive Date: 20250419
  Receipt Date: 20250419
  Transmission Date: 20250717
  Serious: Yes (Hospitalization, Other)
  Sender: AMGEN
  Company Number: BR-AMGEN-BRASP2025072093

PATIENT

DRUGS (3)
  1. ADALIMUMAB [Suspect]
     Active Substance: ADALIMUMAB
     Indication: Colitis ulcerative
     Route: 065
  2. INFLIXIMAB [Suspect]
     Active Substance: INFLIXIMAB
     Indication: Colitis ulcerative
     Route: 065
  3. TOFACITINIB [Suspect]
     Active Substance: TOFACITINIB
     Indication: Colitis ulcerative
     Route: 065

REACTIONS (17)
  - Transaminases increased [Unknown]
  - Colitis ulcerative [Unknown]
  - Unevaluable event [Unknown]
  - Prostate cancer [Unknown]
  - Clostridium difficile colitis [Unknown]
  - Cellulitis [Unknown]
  - Cytomegalovirus colitis [Unknown]
  - Herpes zoster [Unknown]
  - Treatment failure [Unknown]
  - Folliculitis [Unknown]
  - Loss of therapeutic response [Unknown]
  - Arthritis [Unknown]
  - Herpes simplex [Unknown]
  - Urinary tract infection [Unknown]
  - Upper respiratory tract infection [Unknown]
  - COVID-19 [Unknown]
  - Anaemia [Unknown]
